FAERS Safety Report 12703297 (Version 1)
Quarter: 2016Q3

REPORT INFORMATION
  Report Type: Report from Study
  Country: US (occurrence: US)
  Receive Date: 20160831
  Receipt Date: 20160831
  Transmission Date: 20161109
  Serious: Yes (Hospitalization, Other)
  Sender: FDA-Public Use
  Company Number: US-PFIZER INC-2007061649

PATIENT
  Age: 66 Year
  Sex: Female
  Weight: 77.11 kg

DRUGS (11)
  1. IBUPROFEN. [Suspect]
     Active Substance: IBUPROFEN
     Indication: RHEUMATOID ARTHRITIS
     Dosage: UNK
     Route: 048
     Dates: start: 20070524, end: 20070712
  2. PREDNISONE. [Concomitant]
     Active Substance: PREDNISONE
     Route: 048
     Dates: start: 20011030
  3. SIMVASTATIN. [Concomitant]
     Active Substance: SIMVASTATIN
     Route: 048
     Dates: start: 2005
  4. LISINOPRIL. [Concomitant]
     Active Substance: LISINOPRIL
     Dosage: 20/12.5,QD
     Route: 048
     Dates: start: 20070418
  5. METHOTREXATE. [Concomitant]
     Active Substance: METHOTREXATE
     Dosage: Q WEEK
     Route: 030
     Dates: start: 19940816
  6. FOLIC ACID. [Concomitant]
     Active Substance: FOLIC ACID
     Route: 048
     Dates: start: 19940222
  7. THYROXINE [Concomitant]
     Active Substance: LEVOTHYROXINE
     Dosage: DAILY
     Route: 048
     Dates: start: 198307
  8. DARVOCET [Concomitant]
     Active Substance: ACETAMINOPHEN\PROPOXYPHENE HYDROCHLORIDE
     Dosage: PRN
     Route: 048
     Dates: start: 20011220
  9. IBUPROFEN. [Suspect]
     Active Substance: IBUPROFEN
     Indication: OSTEOARTHRITIS
  10. REMICADE [Concomitant]
     Active Substance: INFLIXIMAB
     Dosage: Q 8 WEEKS
     Route: 042
     Dates: start: 20010529
  11. NEXIUM [Concomitant]
     Active Substance: ESOMEPRAZOLE MAGNESIUM
     Indication: PROPHYLAXIS
     Dosage: 40 MG, 1X/DAY
     Route: 048
     Dates: start: 20070523, end: 20070712

REACTIONS (2)
  - Confusional state [Recovered/Resolved]
  - Gastritis [Recovered/Resolved]

NARRATIVE: CASE EVENT DATE: 20070718
